FAERS Safety Report 23142268 (Version 2)
Quarter: 2023Q4

REPORT INFORMATION
  Report Type: Spontaneous
  Country: CA (occurrence: CA)
  Receive Date: 20231103
  Receipt Date: 20231108
  Transmission Date: 20240109
  Serious: Yes (Other)
  Sender: FDA-Public Use
  Company Number: CA-BAYER-2023A155660

PATIENT
  Age: 56 Year
  Sex: Female

DRUGS (1)
  1. EYLEA [Suspect]
     Active Substance: AFLIBERCEPT
     Indication: Age-related macular degeneration
     Dosage: SOLUTION FOR INJECTION, 40MG/ML

REACTIONS (4)
  - Intra-ocular injection complication [Unknown]
  - Injection site discharge [Unknown]
  - Injection site discomfort [Unknown]
  - Injection site pain [Unknown]
